FAERS Safety Report 24149619 (Version 1)
Quarter: 2024Q3

REPORT INFORMATION
  Report Type: Report from Study
  Country: CA (occurrence: CA)
  Receive Date: 20240730
  Receipt Date: 20240730
  Transmission Date: 20241017
  Serious: Yes (Hospitalization, Other)
  Sender: ROCHE
  Company Number: CA-ROCHE-3551086

PATIENT
  Age: 69 Year
  Sex: Female

DRUGS (6)
  1. ACTEMRA [Suspect]
     Active Substance: TOCILIZUMAB
     Indication: Rheumatoid arthritis
     Route: 058
     Dates: start: 20170909
  2. ACTEMRA [Suspect]
     Active Substance: TOCILIZUMAB
     Route: 058
     Dates: start: 2022
  3. ACTEMRA [Suspect]
     Active Substance: TOCILIZUMAB
     Route: 058
     Dates: start: 2023, end: 2024
  4. CELEBREX [Concomitant]
     Active Substance: CELECOXIB
  5. RABEPRAZOLE [Concomitant]
     Active Substance: RABEPRAZOLE
  6. SYNTHROID [Concomitant]
     Active Substance: LEVOTHYROXINE SODIUM
     Dosage: 25 MG MICROGRAM(S)

REACTIONS (6)
  - Pain [Unknown]
  - Paralysis [Unknown]
  - Infection [Unknown]
  - Cyst [Unknown]
  - Nodule [Unknown]
  - Extradural abscess [Recovering/Resolving]

NARRATIVE: CASE EVENT DATE: 20240101
